FAERS Safety Report 18803727 (Version 1)
Quarter: 2021Q1

REPORT INFORMATION
  Report Type: Spontaneous
  Country: US (occurrence: US)
  Receive Date: 20210129
  Receipt Date: 20210129
  Transmission Date: 20210419
  Serious: No
  Sender: FDA-Public Use
  Company Number: US-UCBSA-2020003428

PATIENT
  Age: 40 Year
  Sex: Male

DRUGS (3)
  1. FOSPHENYTOIN [Concomitant]
     Active Substance: FOSPHENYTOIN
     Indication: STATUS EPILEPTICUS
     Dosage: UNK
  2. KEPPRA [Suspect]
     Active Substance: LEVETIRACETAM
     Indication: STATUS EPILEPTICUS
     Dosage: UNK
  3. KEPPRA [Suspect]
     Active Substance: LEVETIRACETAM
     Indication: OFF LABEL USE

REACTIONS (1)
  - No adverse event [Unknown]
